FAERS Safety Report 7586118-3 (Version None)
Quarter: 2011Q2

REPORT INFORMATION
  Report Type: 
  Country: None (occurrence: None)
  Receive Date: 20110624
  Receipt Date: 20110608
  Transmission Date: 20111010
  Serious: Yes (Hospitalization)
  Sender: FDA-Public Use
  Company Number: DSA_46788_2011

PATIENT
  Age: 87 Year
  Sex: Female

DRUGS (7)
  1. DEPONIT [Concomitant]
  2. ENALAPRIL MALEATE [Suspect]
     Indication: HYPERTENSION
     Dosage: (20 MG QD ORAL)
     Route: 048
     Dates: start: 20110101, end: 20110209
  3. LASIX [Suspect]
     Indication: HYPERTENSION
     Dosage: (25 MG QD ORAL)
     Route: 048
     Dates: start: 20080101, end: 20110209
  4. ASPIRIN [Concomitant]
  5. ALLOPURINOL [Concomitant]
  6. METOPROLOL TARTRATE [Concomitant]
  7. INSULIN [Concomitant]

REACTIONS (3)
  - WHITE BLOOD CELL COUNT INCREASED [None]
  - OBSTRUCTIVE UROPATHY [None]
  - RENAL FAILURE ACUTE [None]
